FAERS Safety Report 7752146-8 (Version None)
Quarter: 2011Q3

REPORT INFORMATION
  Report Type: 
  Country: None (occurrence: None)
  Receive Date: 20110915
  Receipt Date: 20110913
  Transmission Date: 20111222
  Serious: Yes (Other)
  Sender: FDA-Public Use
  Company Number: US-PFIZER INC-2011216314

PATIENT
  Sex: Female
  Weight: 65.76 kg

DRUGS (6)
  1. GEODON [Suspect]
     Indication: AGGRESSION
  2. PROZAC [Concomitant]
     Dosage: 20 MG, 1X/DAY
  3. GEODON [Suspect]
     Indication: BIPOLAR DISORDER
     Dosage: 80 MG, 2X/DAY
     Route: 048
  4. GEODON [Suspect]
     Indication: MOOD SWINGS
  5. GEODON [Suspect]
     Indication: ANGER
  6. MELATONIN [Concomitant]
     Dosage: 2-4 MG, 1X/DAY AT NIGHT

REACTIONS (4)
  - TREMOR [None]
  - DRUG INEFFECTIVE [None]
  - SOMNOLENCE [None]
  - SEDATION [None]
